FAERS Safety Report 4441793-7 (Version None)
Quarter: 2004Q3

REPORT INFORMATION
  Report Type: 
  Country: None (occurrence: None)
  Receive Date: 20040907
  Receipt Date: 20040219
  Transmission Date: 20050211
  Serious: Yes (Life-Threatening, Hospitalization, Disabling)
  Sender: FDA-Public Use
  Company Number: US-MERCK-0402USA01507

PATIENT
  Age: 49 Year
  Sex: Female

DRUGS (15)
  1. [THERAPY UNSPECIFIED] [Concomitant]
     Route: 065
  2. CANCIDAS [Suspect]
     Indication: INFECTION
     Route: 042
     Dates: start: 20040217, end: 20040217
  3. CANCIDAS [Suspect]
     Route: 042
     Dates: start: 20040218, end: 20040219
  4. CANCIDAS [Suspect]
     Indication: PYREXIA
     Route: 042
     Dates: start: 20040217, end: 20040217
  5. CANCIDAS [Suspect]
     Route: 042
     Dates: start: 20040218, end: 20040219
  6. CEFTAZIDIME [Concomitant]
     Route: 065
     Dates: start: 20040212, end: 20040218
  7. PRIMAXIN [Concomitant]
     Route: 042
     Dates: start: 20040218
  8. DOXYCYCLINE [Concomitant]
     Route: 065
     Dates: start: 20040213, end: 20040213
  9. FOLIC ACID [Concomitant]
     Route: 065
  10. LEVAQUIN [Concomitant]
     Route: 065
     Dates: start: 20040211
  11. MERCAPTOPURINE [Suspect]
     Route: 065
  12. NICOTINE [Concomitant]
     Route: 065
  13. PROTONA [Concomitant]
     Route: 065
  14. VANCOMYCIN [Concomitant]
     Route: 065
     Dates: start: 20040213, end: 20040213
  15. VANCOMYCIN [Concomitant]
     Route: 065
     Dates: start: 20040214

REACTIONS (5)
  - CARDIO-RESPIRATORY ARREST [None]
  - COMA [None]
  - DRUG LEVEL INCREASED [None]
  - HEPATIC FAILURE [None]
  - HYPOGLYCAEMIA [None]
